FAERS Safety Report 14301801 (Version 1)
Quarter: 2017Q4

REPORT INFORMATION
  Report Type: Spontaneous
  Country: US (occurrence: US)
  Receive Date: 20171219
  Receipt Date: 20171219
  Transmission Date: 20180321
  Serious: Yes (Other)
  Sender: FDA-Public Use
  Company Number: US-SUPERNUS PHARMACEUTICALS, INC.-2017SUP00030

PATIENT
  Age: 84 Year
  Sex: Female
  Weight: 66.21 kg

DRUGS (8)
  1. OXTELLAR XR [Suspect]
     Active Substance: OXCARBAZEPINE
     Indication: TRIGEMINAL NEURALGIA
  2. GABAPENTIN. [Concomitant]
     Active Substance: GABAPENTIN
  3. OXTELLAR XR [Suspect]
     Active Substance: OXCARBAZEPINE
     Indication: TRIGEMINAL NEURALGIA
     Dosage: 300 MG, 1X/DAY
     Dates: start: 20170215
  4. PRAVASTATIN. [Concomitant]
     Active Substance: PRAVASTATIN
  5. OXTELLAR XR [Suspect]
     Active Substance: OXCARBAZEPINE
     Indication: HERPES ZOSTER
     Dosage: 300 MG, 1X/DAY
     Route: 048
     Dates: start: 201701, end: 20170208
  6. DEXILANT [Concomitant]
     Active Substance: DEXLANSOPRAZOLE
     Indication: DYSPEPSIA
  7. OXTELLAR XR [Suspect]
     Active Substance: OXCARBAZEPINE
     Indication: HERPES ZOSTER
     Dosage: 150 MG, 1X/DAY
     Route: 048
     Dates: start: 201701
  8. BYSTOLIC [Concomitant]
     Active Substance: NEBIVOLOL HYDROCHLORIDE
     Dosage: 5 MG, UNK

REACTIONS (4)
  - Off label use [Not Recovered/Not Resolved]
  - Dizziness [Recovered/Resolved]
  - Syncope [Recovered/Resolved]
  - Dehydration [Unknown]

NARRATIVE: CASE EVENT DATE: 201701
